FAERS Safety Report 9299407 (Version 2)
Quarter: 2013Q4

REPORT INFORMATION
  Report Type: Spontaneous
  Country: US (occurrence: US)
  Receive Date: 20130520
  Receipt Date: 20131220
  Transmission Date: 20140711
  Serious: Yes (Hospitalization)
  Sender: FDA-Public Use
  Company Number: US-B.I. PHARMACEUTICALS,INC./RIDGEFIELD-2013-BI-13964BP

PATIENT
  Age: 91 Year
  Sex: Female

DRUGS (8)
  1. PRADAXA [Suspect]
     Indication: ANTICOAGULANT THERAPY
     Dosage: 300 MG
     Dates: start: 20110209, end: 20110601
  2. PRADAXA [Suspect]
     Indication: ATRIAL FIBRILLATION
  3. MELOXICAM [Concomitant]
     Dosage: 7.5 MG
  4. METOPROLOL [Concomitant]
     Dosage: 25 MG
  5. KLOR-CON [Concomitant]
     Dosage: 20 MEQ
  6. FUROSEMIDE [Concomitant]
     Dosage: 40 MG
  7. ZYRTEC [Concomitant]
     Dosage: 10 MG
  8. LOMOTIL [Concomitant]

REACTIONS (3)
  - Gastrointestinal haemorrhage [Unknown]
  - Anaemia [Unknown]
  - Toxicity to various agents [Unknown]
